FAERS Safety Report 7205763-8 (Version None)
Quarter: 2010Q4

REPORT INFORMATION
  Report Type: 
  Country: None (occurrence: None)
  Receive Date: 20101231
  Receipt Date: 20101222
  Transmission Date: 20110411
  Serious: Yes (Hospitalization, Other)
  Sender: FDA-Public Use
  Company Number: US-PFIZER INC-2010058326

PATIENT
  Sex: Female
  Weight: 68.027 kg

DRUGS (15)
  1. CELEBREX [Suspect]
     Indication: OSTEOARTHRITIS
     Dosage: 200 MG, 3X/DAY
  2. BEXTRA [Suspect]
     Dosage: UNK
  3. PREMARIN [Suspect]
     Indication: HORMONE REPLACEMENT THERAPY
     Dosage: 0.3 MG, 1X/DAY
  4. PREMARIN [Suspect]
     Dosage: 2.5 MG, 1X/DAY
  5. PREMARIN [Suspect]
     Dosage: 1.25 MG, 1X/DAY
  6. PREMARIN [Suspect]
     Dosage: 0.3 MG, TAPERED TO EVERY OTHER
  7. PREMARIN [Suspect]
     Dosage: 0.3 MG, 1X/2DAY
  8. NEURONTIN [Concomitant]
     Dosage: UNK
  9. VICODIN [Concomitant]
     Dosage: UNK
  10. SOMA [Concomitant]
     Dosage: UNK
  11. LISINOPRIL [Concomitant]
     Dosage: UNK
  12. AMITRIPTYLINE [Concomitant]
     Dosage: UNK
  13. PROGESTERONE [Concomitant]
     Dosage: UNK
  14. VITAMIN E [Concomitant]
     Dosage: UNK
  15. ZANTAC [Concomitant]

REACTIONS (7)
  - ACTIVITIES OF DAILY LIVING IMPAIRED [None]
  - ANAEMIA [None]
  - DIABETES MELLITUS [None]
  - DRUG WITHDRAWAL SYNDROME [None]
  - GASTROINTESTINAL HAEMORRHAGE [None]
  - RECTAL HAEMORRHAGE [None]
  - THINKING ABNORMAL [None]
